FAERS Safety Report 7671053-2 (Version None)
Quarter: 2011Q3

REPORT INFORMATION
  Report Type: 
  Country: None (occurrence: None)
  Receive Date: 20110809
  Receipt Date: 20110726
  Transmission Date: 20111222
  Serious: Yes (Other)
  Sender: FDA-Public Use
  Company Number: IL-CELGENEUS-082-21880-11072838

PATIENT
  Age: 60 Year
  Sex: Male

DRUGS (3)
  1. REVLIMID [Suspect]
     Indication: MULTIPLE MYELOMA
     Dosage: 25 MILLIGRAM
     Route: 048
     Dates: start: 20110101
  2. ASPIRIN [Concomitant]
     Indication: PROPHYLAXIS
     Route: 065
  3. ENOXAPARIN SODIUM [Concomitant]
     Route: 065

REACTIONS (1)
  - NERVOUS SYSTEM DISORDER [None]
